FAERS Safety Report 9937642 (Version 1)
Quarter: 2014Q1

REPORT INFORMATION
  Report Type: Spontaneous
  Country: US (occurrence: US)
  Receive Date: 20140303
  Receipt Date: 20140303
  Transmission Date: 20141002
  Serious: Yes (Other)
  Sender: FDA-Public Use
  Company Number: US-ROCHE-1351470

PATIENT
  Sex: Female

DRUGS (21)
  1. TAMIFLU [Suspect]
     Indication: IMMUNODEFICIENCY
     Route: 065
     Dates: start: 201401
  2. ROCEPHIN [Concomitant]
     Dosage: IN THE HOSPITAL
     Route: 065
  3. THEOPHYLLINE [Concomitant]
  4. AMARYL [Concomitant]
     Dosage: 4 MG IN THE MORNING, 4 MG AT NIGHT
     Route: 065
  5. XANAX [Concomitant]
     Dosage: IN THE HOSPITAL
     Route: 065
     Dates: start: 2006
  6. XANAX [Concomitant]
     Dosage: AS NEEDED, HALF, AT HOME
     Route: 065
  7. SOLU-MEDROL [Concomitant]
     Dosage: IN THE HOSPITAL
     Route: 042
  8. AMBIEN [Concomitant]
     Dosage: AT NIGHT
     Route: 065
  9. ADVAIR [Concomitant]
     Route: 065
  10. SINGULAIR [Concomitant]
     Dosage: AT NIGHT
     Route: 065
     Dates: start: 2006
  11. HYDROXYZINE [Concomitant]
     Indication: PRURITUS
     Dosage: IF NEEDED
     Route: 065
  12. CIPRO [Concomitant]
     Dosage: IN THE HOSPITAL
     Route: 065
  13. NEXIUM [Concomitant]
     Dosage: AT HOME
     Route: 065
  14. PROTONIX (UNITED STATES) [Concomitant]
     Dosage: IN THE HOSPITAL
     Route: 065
  15. LASIX [Concomitant]
     Route: 065
  16. CARDIZEM [Concomitant]
     Indication: BLOOD PRESSURE
     Route: 065
  17. CARDIZEM [Concomitant]
     Dosage: IF HEART RATE GETS OVER 100
     Route: 065
  18. SYNTHROID [Concomitant]
     Route: 065
  19. ZYRTEC [Concomitant]
     Dosage: AS NEEDED
     Route: 065
  20. INSULIN [Concomitant]
  21. PREDNISONE [Concomitant]

REACTIONS (11)
  - Abnormal behaviour [Unknown]
  - Crying [Unknown]
  - Depression [Unknown]
  - Anxiety [Unknown]
  - Confusional state [Unknown]
  - Agitation [Unknown]
  - Panic attack [Unknown]
  - Irritability [Unknown]
  - Dyspnoea [Unknown]
  - Blood potassium decreased [Unknown]
  - Blood glucose increased [Unknown]
